FAERS Safety Report 24612523 (Version 1)
Quarter: 2024Q4

REPORT INFORMATION
  Report Type: Spontaneous
  Country: FR (occurrence: FR)
  Receive Date: 20241113
  Receipt Date: 20241113
  Transmission Date: 20250115
  Serious: Yes (Other)
  Sender: TEVA
  Company Number: None

PATIENT
  Age: 48 Year
  Sex: Male

DRUGS (2)
  1. LEVOFLOXACIN [Suspect]
     Active Substance: LEVOFLOXACIN
     Indication: Bacterial infection
     Dosage: LEVOFLOXACINE
     Route: 048
     Dates: start: 20180525, end: 20180802
  2. RIFAMPIN [Suspect]
     Active Substance: RIFAMPIN
     Indication: Bacterial infection
     Route: 048
     Dates: start: 20180525, end: 20180802

REACTIONS (2)
  - Arthralgia [Recovered/Resolved]
  - Tendon disorder [Recovered/Resolved]

NARRATIVE: CASE EVENT DATE: 20180620
